FAERS Safety Report 9888780 (Version 1)
Quarter: 2014Q1

REPORT INFORMATION
  Report Type: Spontaneous
  Country: US (occurrence: None)
  Receive Date: 20140210
  Receipt Date: 20140210
  Transmission Date: 20141002
  Serious: No
  Sender: FDA-Public Use
  Company Number: None

PATIENT
  Age: 34 Year
  Sex: Female
  Weight: 49.9 kg

DRUGS (1)
  1. QVAR [Suspect]
     Indication: MULTIPLE ALLERGIES
     Dosage: 2 PUFFS
     Route: 055
     Dates: start: 20131122, end: 20140207

REACTIONS (3)
  - Fear [None]
  - Nightmare [None]
  - Middle insomnia [None]
